FAERS Safety Report 19264009 (Version 3)
Quarter: 2021Q3

REPORT INFORMATION
  Report Type: Spontaneous
  Country: US (occurrence: US)
  Receive Date: 20210517
  Receipt Date: 20210817
  Transmission Date: 20211014
  Serious: No
  Sender: FDA-Public Use
  Company Number: US-BRISTOL-MYERS SQUIBB COMPANY-BMS-2021-045680

PATIENT
  Age: 45 Year
  Sex: Female

DRUGS (4)
  1. ORENCIA [Suspect]
     Active Substance: ABATACEPT
     Indication: PSORIASIS
     Dosage: 125 MILLIGRAM, QWK
     Route: 058
     Dates: start: 20210415
  2. ORENCIA [Suspect]
     Active Substance: ABATACEPT
     Indication: PSORIATIC ARTHROPATHY
  3. ORENCIA [Suspect]
     Active Substance: ABATACEPT
     Indication: PSORIATIC ARTHROPATHY
  4. ORENCIA [Suspect]
     Active Substance: ABATACEPT
     Indication: PSORIASIS
     Dosage: 125 MILLIGRAM, QWK
     Route: 058
     Dates: start: 20210415

REACTIONS (5)
  - Swelling face [Unknown]
  - Swelling [Unknown]
  - Emotional disorder [Unknown]
  - Intentional product use issue [Unknown]
  - Urticaria [Unknown]
